FAERS Safety Report 25074861 (Version 2)
Quarter: 2025Q1

REPORT INFORMATION
  Report Type: Spontaneous
  Country: JP (occurrence: JP)
  Receive Date: 20250313
  Receipt Date: 20250320
  Transmission Date: 20250409
  Serious: Yes (Other)
  Sender: ACCORD
  Company Number: JP-Accord-473853

PATIENT
  Age: 7 Decade
  Sex: Female

DRUGS (3)
  1. GEMCITABINE [Suspect]
     Active Substance: GEMCITABINE
     Indication: Lung squamous cell carcinoma stage IV
  2. CISPLATIN [Suspect]
     Active Substance: CISPLATIN
     Indication: Lung squamous cell carcinoma stage IV
  3. NECITUMUMAB [Concomitant]
     Active Substance: NECITUMUMAB
     Indication: Lung squamous cell carcinoma stage IV

REACTIONS (2)
  - Neutropenia [Unknown]
  - Leukopenia [Unknown]
